FAERS Safety Report 4678192-9 (Version None)
Quarter: 2005Q2

REPORT INFORMATION
  Report Type: 
  Country: None (occurrence: None)
  Receive Date: 20050527
  Receipt Date: 20050518
  Transmission Date: 20051028
  Serious: Yes (Death)
  Sender: FDA-Public Use
  Company Number: 213550

PATIENT
  Age: 68 Year
  Sex: Male

DRUGS (2)
  1. RITUXAN [Suspect]
     Indication: PROPHYLAXIS AGAINST TRANSPLANT REJECTION
     Dosage: 50MG, INTRAVENOUS
     Route: 042
     Dates: start: 20050101, end: 20050101
  2. RITUXAN [Suspect]
     Indication: PROPHYLAXIS AGAINST TRANSPLANT REJECTION
     Dosage: 50MG, INTRAVENOUS
     Route: 042
     Dates: start: 20050227, end: 20050227

REACTIONS (2)
  - CEREBRAL INFARCTION [None]
  - RESPIRATORY ARREST [None]
